FAERS Safety Report 25835110 (Version 1)
Quarter: 2025Q3

REPORT INFORMATION
  Report Type: Report from Study
  Country: US (occurrence: US)
  Receive Date: 20250923
  Receipt Date: 20250923
  Transmission Date: 20251020
  Serious: No
  Sender: SUNOVION
  Company Number: US-SUMITOMO PHARMA SWITZERLAND GMBH-2025SPA011814

PATIENT
  Age: 82 Year
  Sex: Male

DRUGS (14)
  1. ORGOVYX [Suspect]
     Active Substance: RELUGOLIX
     Indication: Prostate cancer
     Route: 048
  2. ORGOVYX [Suspect]
     Active Substance: RELUGOLIX
     Route: 048
  3. AMLODIPINE [Concomitant]
     Active Substance: AMLODIPINE BESYLATE
  4. ASPIRIN [Concomitant]
     Active Substance: ASPIRIN
  5. ESOMEPRAZOLE [Concomitant]
     Active Substance: ESOMEPRAZOLE
  6. FAMOTIDINE [Concomitant]
     Active Substance: FAMOTIDINE
  7. MINERALS\VITAMINS [Concomitant]
     Active Substance: MINERALS\VITAMINS
  8. PANTOPRAZOLE [Concomitant]
     Active Substance: PANTOPRAZOLE
  9. PHENYTOIN [Concomitant]
     Active Substance: PHENYTOIN
  10. ROLAIDS [Concomitant]
     Active Substance: CALCIUM CARBONATE\MAGNESIUM HYDROXIDE
  11. SIMVASTATIN [Concomitant]
     Active Substance: SIMVASTATIN
  12. TERAZOSIN [Concomitant]
     Active Substance: TERAZOSIN HYDROCHLORIDE
  13. TRAMADOL [Concomitant]
     Active Substance: TRAMADOL
  14. VALSARTAN [Concomitant]
     Active Substance: VALSARTAN

REACTIONS (4)
  - Impaired quality of life [Recovering/Resolving]
  - Hot flush [Recovering/Resolving]
  - Fatigue [Recovering/Resolving]
  - Treatment noncompliance [Not Recovered/Not Resolved]
